FAERS Safety Report 25999003 (Version 1)
Quarter: 2025Q4

REPORT INFORMATION
  Report Type: Report from Study
  Country: US (occurrence: US)
  Receive Date: 20251105
  Receipt Date: 20251105
  Transmission Date: 20260117
  Serious: Yes (Hospitalization, Other)
  Sender: ALEXION PHARMACEUTICALS
  Company Number: US-ASTRAZENECA-202509USA027878US

PATIENT
  Age: 59 Year
  Sex: Female

DRUGS (1)
  1. STRENSIQ [Suspect]
     Active Substance: ASFOTASE ALFA
     Indication: Hypophosphatasia
     Dosage: 188 MILLIGRAM, TIW

REACTIONS (5)
  - Asthenia [Unknown]
  - Hydronephrosis [Unknown]
  - Cardiac failure congestive [Unknown]
  - Thyroid mass [Unknown]
  - Blood potassium abnormal [Unknown]
